FAERS Safety Report 4421318-2 (Version None)
Quarter: 2004Q3

REPORT INFORMATION
  Report Type: 
  Country: None (occurrence: None)
  Receive Date: 20040707
  Receipt Date: 20040505
  Transmission Date: 20050211
  Serious: Yes (Hospitalization)
  Sender: FDA-Public Use
  Company Number: A03200400392

PATIENT
  Age: 41 Year
  Sex: Male
  Weight: 99.7913 kg

DRUGS (8)
  1. ARIXTRA [Suspect]
     Indication: HIP ARTHROPLASTY
     Dosage: 2.5 MG QD SUBCUTANEOUS
     Route: 058
     Dates: start: 20040127, end: 20040129
  2. ARIXTRA [Suspect]
     Indication: SURGERY
     Dosage: 2.5 MG QD SUBCUTANEOUS
     Route: 058
     Dates: start: 20040127, end: 20040129
  3. ARIXTRA [Suspect]
     Indication: THROMBOSIS PROPHYLAXIS
     Dosage: 2.5 MG QD SUBCUTANEOUS
     Route: 058
     Dates: start: 20040127, end: 20040129
  4. CEPHALEXIN MONOHYDRATE [Concomitant]
  5. MORPHINE [Concomitant]
  6. LAXATIVE NOS [Concomitant]
  7. CARBAMAZEPINE [Concomitant]
  8. VALPROIC ACID [Concomitant]

REACTIONS (2)
  - HEPARIN-INDUCED THROMBOCYTOPENIA [None]
  - POST PROCEDURAL HAEMATOMA [None]
